FAERS Safety Report 9916749 (Version 1)
Quarter: 2014Q1

REPORT INFORMATION
  Report Type: Spontaneous
  Country: BR (occurrence: BR)
  Receive Date: 20140221
  Receipt Date: 20140221
  Transmission Date: 20141002
  Serious: Yes (Other)
  Sender: FDA-Public Use
  Company Number: BR-ABBVIE-14P-020-1204497-00

PATIENT
  Age: 79 Year
  Sex: Male
  Weight: 86 kg

DRUGS (8)
  1. CREON [Suspect]
     Indication: DYSPEPSIA
     Dosage: FORM STRENGTH: 25.000 UI, BEFORE BREAKFAST AND BEFORE LUNCH
     Route: 048
     Dates: start: 201312
  2. PANCREATIN [Suspect]
     Indication: PRODUCT USED FOR UNKNOWN INDICATION
  3. OMEPRAZOLE [Concomitant]
     Indication: PRODUCT USED FOR UNKNOWN INDICATION
     Dosage: AT 8:00AM
     Route: 048
  4. ARADOIS [Concomitant]
     Indication: BLOOD PRESSURE
     Dosage: AT 9:00AM AND AT 8:00PM
     Route: 048
     Dates: start: 2013
  5. SELOZOK [Concomitant]
     Indication: ARRHYTHMIA
     Dosage: AT 9:20AM
     Route: 048
     Dates: start: 2013
  6. COMBODART [Concomitant]
     Indication: PROSTATOMEGALY
     Dosage: AT 2:00PM
     Route: 048
     Dates: start: 2013
  7. FRONTAL [Concomitant]
     Indication: RELAXATION THERAPY
     Dosage: AT 11:00PM
     Route: 048
     Dates: start: 2013
  8. SINVASCOR [Concomitant]
     Indication: BLOOD CHOLESTEROL
     Dosage: AT NIGHT
     Route: 048

REACTIONS (2)
  - Skin papilloma [Unknown]
  - Dysentery [Recovered/Resolved]
